FAERS Safety Report 9823269 (Version 2)
Quarter: 2014Q1

REPORT INFORMATION
  Report Type: Spontaneous
  Country: US (occurrence: US)
  Receive Date: 20140116
  Receipt Date: 20140116
  Transmission Date: 20141002
  Serious: Yes (Hospitalization)
  Sender: FDA-Public Use
  Company Number: US-LUNDBECK-DKLU1093074

PATIENT
  Sex: Female
  Weight: 14 kg

DRUGS (4)
  1. SABRIL (FOR ORAL SOLUTION) [Suspect]
     Indication: INFANTILE SPASMS
     Route: 048
     Dates: start: 20100701
  2. SABRIL (FOR ORAL SOLUTION) [Suspect]
     Route: 048
     Dates: start: 20130802
  3. SABRIL (FOR ORAL SOLUTION) [Suspect]
     Route: 048
     Dates: start: 20131017
  4. PHOSPHORUS [Suspect]
     Indication: HYPOPHOSPHATAEMIA

REACTIONS (2)
  - Hypocalcaemia [Unknown]
  - Convulsion [Unknown]
